FAERS Safety Report 10575830 (Version 1)
Quarter: 2014Q4

REPORT INFORMATION
  Report Type: Report from Study
  Country: US (occurrence: US)
  Receive Date: 20141111
  Receipt Date: 20141111
  Transmission Date: 20150529
  Serious: Yes (Other)
  Sender: FDA-Public Use
  Company Number: US-MYLANLABS-2014M1009685

PATIENT

DRUGS (1)
  1. NAFCILLIN [Suspect]
     Active Substance: NAFCILLIN\NAFCILLIN SODIUM
     Indication: DEVICE RELATED INFECTION
     Route: 051

REACTIONS (2)
  - Type IV hypersensitivity reaction [Recovered/Resolved]
  - Nephritis autoimmune [Recovered/Resolved]
